FAERS Safety Report 25996417 (Version 2)
Quarter: 2025Q4

REPORT INFORMATION
  Report Type: Spontaneous
  Country: EU (occurrence: EU)
  Receive Date: 20251104
  Receipt Date: 20251127
  Transmission Date: 20260117
  Serious: Yes (Other)
  Sender: ABBVIE
  Company Number: EU-ABBVIE-6524757

PATIENT

DRUGS (2)
  1. ELAHERE [Suspect]
     Active Substance: MIRVETUXIMAB SORAVTANSINE-GYNX
     Indication: Product used for unknown indication
     Dosage: 5 MG/ML INJECTION.
     Route: 042
     Dates: end: 202510
  2. ELAHERE [Suspect]
     Active Substance: MIRVETUXIMAB SORAVTANSINE-GYNX
     Indication: Product used for unknown indication
     Dosage: 5 MG/ML INJECTION?DOSE REDUCED
     Route: 042
     Dates: start: 202510

REACTIONS (9)
  - Blindness [Unknown]
  - Abdominal pain upper [Recovered/Resolved]
  - Vision blurred [Unknown]
  - Vomiting [Recovered/Resolved]
  - Dry eye [Unknown]
  - Fatigue [Unknown]
  - Neuropathy peripheral [Unknown]
  - Gastrointestinal disorder [Recovered/Resolved]
  - Ocular toxicity [Unknown]
